FAERS Safety Report 14076895 (Version 2)
Quarter: 2017Q4

REPORT INFORMATION
  Report Type: Spontaneous
  Country: SE (occurrence: SE)
  Receive Date: 20171011
  Receipt Date: 20171027
  Transmission Date: 20180321
  Serious: Yes (Other)
  Sender: FDA-Public Use
  Company Number: SE-ELI_LILLY_AND_COMPANY-SE201710002035

PATIENT
  Age: 12 Year
  Sex: Female

DRUGS (2)
  1. MELATONIN [Concomitant]
     Active Substance: MELATONIN
     Dosage: UNK, UNKNOWN
     Route: 065
  2. FLUOXETINE HYDROCHLORIDE 20MG [Suspect]
     Active Substance: FLUOXETINE HYDROCHLORIDE
     Indication: DEPRESSION
     Dosage: UNK, UNKNOWN
     Route: 048
     Dates: start: 201611, end: 20170823

REACTIONS (3)
  - Rash [Recovered/Resolved]
  - Pruritus [Recovered/Resolved]
  - Dyspnoea [Recovered/Resolved]

NARRATIVE: CASE EVENT DATE: 201611
